FAERS Safety Report 16652008 (Version 1)
Quarter: 2019Q3

REPORT INFORMATION
  Report Type: Spontaneous
  Country: US (occurrence: US)
  Receive Date: 20190730
  Receipt Date: 20190730
  Transmission Date: 20191004
  Serious: Yes (Other)
  Sender: FDA-Public Use
  Company Number: None

PATIENT
  Age: 64 Year
  Sex: Male
  Weight: 101.25 kg

DRUGS (2)
  1. 81 MG ASPIRIN 1 X DAILY [Concomitant]
  2. REPATHA [Suspect]
     Active Substance: EVOLOCUMAB
     Indication: BLOOD CHOLESTEROL INCREASED
     Dosage: ?          QUANTITY:1 INJECTION(S);OTHER FREQUENCY:ONCE EVERY 14 DAYS;?
     Dates: start: 20190702, end: 20190716

REACTIONS (8)
  - Skin burning sensation [None]
  - Diarrhoea [None]
  - Pain [None]
  - Malaise [None]
  - Muscular weakness [None]
  - Fatigue [None]
  - Gastrointestinal disorder [None]
  - Headache [None]

NARRATIVE: CASE EVENT DATE: 20190728
